FAERS Safety Report 17951532 (Version 2)
Quarter: 2020Q3

REPORT INFORMATION
  Report Type: Report from Study
  Country: US (occurrence: US)
  Receive Date: 20200626
  Receipt Date: 20200908
  Transmission Date: 20201103
  Serious: Yes (Hospitalization, Other)
  Sender: FDA-Public Use
  Company Number: US-BAYER-2020-125733

PATIENT
  Age: 70 Year
  Sex: Male

DRUGS (1)
  1. STIVARGA [Suspect]
     Active Substance: REGORAFENIB
     Indication: GASTROINTESTINAL STROMAL TUMOUR
     Dosage: 120MG QD FOR 21 DAYS OF 28 DAYS
     Route: 048

REACTIONS (3)
  - Gastrointestinal stromal tumour [None]
  - Off label use [None]
  - Infection [None]
